FAERS Safety Report 5471135-X (Version None)
Quarter: 2007Q3

REPORT INFORMATION
  Report Type: 
  Country: None (occurrence: None)
  Receive Date: 20070928
  Receipt Date: 20070917
  Transmission Date: 20080115
  Serious: Yes (Other)
  Sender: FDA-Public Use
  Company Number: DE-ROCHE-514258

PATIENT
  Age: 45 Year
  Sex: Male
  Weight: 190 kg

DRUGS (4)
  1. BONIVA [Suspect]
     Indication: BONE SWELLING
     Route: 042
     Dates: start: 20070731
  2. VOLTAREN [Concomitant]
     Dosage: DRUG REPORTD: VOLTAREN RET
     Route: 048
     Dates: start: 20070821
  3. ASPIRIN [Concomitant]
     Route: 048
     Dates: start: 20070821
  4. ORANGE JUICE [Concomitant]
     Route: 048
     Dates: start: 20070821

REACTIONS (1)
  - ANGIOEDEMA [None]
